FAERS Safety Report 6844967-0 (Version None)
Quarter: 2010Q3

REPORT INFORMATION
  Report Type: 
  Country: None (occurrence: None)
  Receive Date: 20100715
  Receipt Date: 20100707
  Transmission Date: 20110219
  Serious: Yes (Other)
  Sender: FDA-Public Use
  Company Number: FR-ABBOTT-10P-056-0648807-00

PATIENT
  Sex: Female
  Weight: 58 kg

DRUGS (3)
  1. HUMIRA [Suspect]
     Indication: CROHN'S DISEASE
     Dosage: 80 MG LOADING DOSE
     Route: 058
     Dates: start: 20100401, end: 20100401
  2. HUMIRA [Suspect]
     Dates: start: 20100401, end: 20100501
  3. LANVIS [Concomitant]
     Indication: CROHN'S DISEASE
     Dosage: 20 MG DAILY
     Route: 048
     Dates: start: 20050101

REACTIONS (2)
  - VERTIGO [None]
  - VISUAL IMPAIRMENT [None]
